FAERS Safety Report 4375122-4 (Version None)
Quarter: 2004Q2

REPORT INFORMATION
  Report Type: 
  Country: None (occurrence: None)
  Receive Date: 20040603
  Receipt Date: 20040531
  Transmission Date: 20050107
  Serious: Yes (Death)
  Sender: FDA-Public Use
  Company Number: AU-JNJFOC-20040400849

PATIENT
  Sex: 0

DRUGS (1)
  1. RISPERDAL [Suspect]
     Indication: DEMENTIA
     Dosage: 1 MG, IN 1 DAY, ORAL
     Route: 048

REACTIONS (3)
  - DISEASE RECURRENCE [None]
  - EMOTIONAL DISORDER [None]
  - MOVEMENT DISORDER [None]
